FAERS Safety Report 16918560 (Version 1)
Quarter: 2019Q4

REPORT INFORMATION
  Report Type: Report from Study
  Country: IT (occurrence: IT)
  Receive Date: 20191015
  Receipt Date: 20191015
  Transmission Date: 20200122
  Serious: Yes (Death)
  Sender: FDA-Public Use
  Company Number: IT-ROCHE-2442459

PATIENT
  Sex: Female
  Weight: 77 kg

DRUGS (5)
  1. ATEZOLIZUMAB. [Suspect]
     Active Substance: ATEZOLIZUMAB
     Indication: COLORECTAL CANCER METASTATIC
     Dosage: OVER 30 MINUTES (60 MINUTES AT THE FIRST INFUSION) DAY 1?MOST RECENT DOSE OF ATEZOLIZUMAB 840 MG PRI
     Route: 042
     Dates: start: 20190822, end: 20191002
  2. BEVACIZUMAB. [Suspect]
     Active Substance: BEVACIZUMAB
     Indication: COLORECTAL CANCER METASTATIC
     Dosage: OVER 30 MINUTES DAY 1?MOST RECENT DOSE OF BEVACIZUMAB 5 MG/KG (380 MG) PRIOR TO EVENT ONSET ON 23/SE
     Route: 042
     Dates: start: 20190822, end: 20191002
  3. IRINOTECAN [Suspect]
     Active Substance: IRINOTECAN
     Indication: COLORECTAL CANCER METASTATIC
     Dosage: OVER 60 MINUTES DAY 1?MOST RECENT DOSE OF IRINOTECAN 112 MG/M2 (207 MG) PRIOR TO EVENT ONSET ON 23/S
     Route: 042
     Dates: start: 20190822, end: 20191002
  4. OXALIPLATIN. [Suspect]
     Active Substance: OXALIPLATIN
     Indication: COLORECTAL CANCER METASTATIC
     Dosage: OVER 2 HOURS DAY 1?MOST RECENT DOSE OF OXALIPLATIN 64 MG/M2 (117 MG) PRIOR TO EVENT ONSET ON 23/SEP/
     Route: 042
     Dates: start: 20190822, end: 20191002
  5. 5-FLUOROURACIL [FLUOROURACIL] [Suspect]
     Active Substance: FLUOROURACIL
     Indication: COLORECTAL CANCER METASTATIC
     Dosage: 48 HOUR CONTINUOUS INFUSION?MOST RECENT DOSE OF 5-FU 2100 MG/M2 ( 3864 MG) PRIOR TO EVENT ONSET ON 2
     Route: 042
     Dates: start: 20190822, end: 20191002

REACTIONS (1)
  - Sudden death [Fatal]
